FAERS Safety Report 15061376 (Version 1)
Quarter: 2018Q2

REPORT INFORMATION
  Report Type: Spontaneous
  Country: US (occurrence: US)
  Receive Date: 20180625
  Receipt Date: 20180625
  Transmission Date: 20180711
  Serious: No
  Sender: FDA-Public Use
  Company Number: US-ROCHE-2086821

PATIENT
  Age: 66 Year
  Sex: Male
  Weight: 81.27 kg

DRUGS (2)
  1. KLONOPIN [Suspect]
     Active Substance: CLONAZEPAM
     Indication: INSOMNIA
  2. KLONOPIN [Suspect]
     Active Substance: CLONAZEPAM
     Indication: PANIC ATTACK
     Dosage: 1-2 DAYS
     Route: 065
     Dates: start: 1991

REACTIONS (5)
  - Depression [Unknown]
  - Road traffic accident [Unknown]
  - Drug ineffective [Unknown]
  - Insomnia [Unknown]
  - Post-traumatic stress disorder [Unknown]

NARRATIVE: CASE EVENT DATE: 2011
